FAERS Safety Report 6247650-8 (Version None)
Quarter: 2009Q2

REPORT INFORMATION
  Report Type: 
  Country: None (occurrence: None)
  Receive Date: 20090626
  Receipt Date: 20090618
  Transmission Date: 20091009
  Serious: Yes (Other)
  Sender: FDA-Public Use
  Company Number: US-ELI_LILLY_AND_COMPANY-US200906004440

PATIENT
  Sex: Female

DRUGS (19)
  1. FORTEO [Suspect]
     Dosage: UNK, UNK
     Dates: end: 20081021
  2. FORTEO [Suspect]
     Dosage: UNK, UNK
     Dates: start: 20090502
  3. ACTONEL [Concomitant]
     Dosage: UNK, MONTHLY (1/M)
  4. CALCIUM [Concomitant]
     Dosage: 2000 MG, DAILY (1/D)
  5. VITACON [Concomitant]
     Dosage: UNK, DAILY (1/D)
  6. PLAVIX [Concomitant]
  7. COUMADIN [Concomitant]
  8. NEURONTIN [Concomitant]
  9. BUMEX [Concomitant]
  10. OXYCONTIN [Concomitant]
  11. DILAUDID [Concomitant]
  12. PHENERGAN [Concomitant]
  13. AMBIEN [Concomitant]
  14. XANAX [Concomitant]
  15. ZANAFLEX [Concomitant]
  16. SPIRIVA [Concomitant]
  17. ADVAIR HFA [Concomitant]
  18. ALBUTEROL [Concomitant]
  19. OXYGEN [Concomitant]
     Dosage: 4 LITER, UNK

REACTIONS (12)
  - DIZZINESS [None]
  - FALL [None]
  - FOREARM FRACTURE [None]
  - INTENTIONAL DRUG MISUSE [None]
  - LOSS OF CONSCIOUSNESS [None]
  - LUMBAR VERTEBRAL FRACTURE [None]
  - MEDICAL DEVICE COMPLICATION [None]
  - NAUSEA [None]
  - RIB FRACTURE [None]
  - SPINAL FRACTURE [None]
  - VERTEBRAL INJURY [None]
  - VOMITING [None]
